FAERS Safety Report 7274282-5 (Version None)
Quarter: 2011Q1

REPORT INFORMATION
  Report Type: 
  Country: None (occurrence: None)
  Receive Date: 20110204
  Receipt Date: 20110128
  Transmission Date: 20110831
  Serious: Yes (Hospitalization)
  Sender: FDA-Public Use
  Company Number: US-TEVA-265136USA

PATIENT
  Sex: Female
  Weight: 57.204 kg

DRUGS (11)
  1. MISOPROSTOL [Suspect]
     Indication: PAIN IN EXTREMITY
     Dosage: 200 UG
     Route: 048
     Dates: start: 20090301, end: 20090401
  2. VICODIN [Concomitant]
  3. CITALOPRAM [Concomitant]
  4. SIMVASTATIN [Concomitant]
  5. VALSARTAN [Concomitant]
  6. MELOXICAM [Suspect]
     Indication: PAIN IN EXTREMITY
     Dates: start: 20090301, end: 20090401
  7. DICLOFENAC SODIUM 75 MG DELAYED RELEASED [Suspect]
     Indication: PAIN IN EXTREMITY
     Dates: start: 20090301, end: 20090401
  8. VITAMINS NOS [Concomitant]
  9. CELECOXIB [Concomitant]
  10. DIAZEPAM [Concomitant]
     Indication: PANIC DISORDER
  11. DIAZEPAM [Concomitant]
     Indication: ANXIETY

REACTIONS (3)
  - FIBROMYALGIA [None]
  - PAIN IN EXTREMITY [None]
  - LIMB OPERATION [None]
